FAERS Safety Report 8547122-1 (Version None)
Quarter: 2012Q3

REPORT INFORMATION
  Report Type: 
  Country: None (occurrence: None)
  Receive Date: 20120727
  Receipt Date: 20120216
  Transmission Date: 20120928
  Serious: No
  Sender: FDA-Public Use
  Company Number: US-ASTRAZENECA-2012SE11064

PATIENT
  Age: 41 Year
  Sex: Male
  Weight: 113.4 kg

DRUGS (20)
  1. SEROQUEL [Suspect]
     Indication: DEPRESSION
     Route: 048
     Dates: start: 20100101
  2. PRAZOSIN [Concomitant]
  3. SEROQUEL [Suspect]
     Indication: SUICIDAL IDEATION
     Route: 048
     Dates: start: 20100101
  4. SEROQUEL [Suspect]
     Route: 048
     Dates: end: 20120201
  5. CLONAZEPAM [Concomitant]
     Dosage: 1 MG IN THE MORNING AND 2 MG AT NIGHT
  6. GLUCOSAMINE [Concomitant]
  7. SEROQUEL [Suspect]
     Route: 048
     Dates: end: 20120201
  8. SEROQUEL [Suspect]
     Route: 048
  9. SEROQUEL [Suspect]
     Route: 048
  10. MELATONIN [Concomitant]
  11. URILOC [Concomitant]
  12. SEROQUEL [Suspect]
     Route: 048
  13. SEROQUEL [Suspect]
     Route: 048
  14. CELEXA [Concomitant]
  15. SEROQUEL [Suspect]
     Route: 048
  16. ASPIRIN [Concomitant]
  17. SEROQUEL [Suspect]
     Indication: POST-TRAUMATIC STRESS DISORDER
     Route: 048
     Dates: start: 20100101
  18. SEROQUEL [Suspect]
     Route: 048
     Dates: end: 20120201
  19. SEROQUEL [Suspect]
     Route: 048
  20. ATENOLOL [Concomitant]
     Indication: HEART RATE INCREASED
     Route: 048

REACTIONS (6)
  - INSOMNIA [None]
  - FATIGUE [None]
  - DRUG INEFFECTIVE FOR UNAPPROVED INDICATION [None]
  - MOOD SWINGS [None]
  - SOMNOLENCE [None]
  - OFF LABEL USE [None]
